FAERS Safety Report 9112763 (Version 2)
Quarter: 2013Q1

REPORT INFORMATION
  Report Type: Spontaneous
  Country: US (occurrence: US)
  Receive Date: 20130211
  Receipt Date: 20130312
  Transmission Date: 20140127
  Serious: Yes (Disabling)
  Sender: FDA-Public Use
  Company Number: US-PFIZER INC-2013050627

PATIENT
  Age: 53 Year
  Sex: 0

DRUGS (6)
  1. EFFEXOR XR [Suspect]
     Dosage: 225 MG (75 MG, TAKE 3 PILLS),1X/DAY
     Route: 048
  2. AZOR [Concomitant]
     Dosage: [AMLODIPINE 5MG]/ [OLMESARTAN MEDOXOMIL 40MG], UNK
  3. CALCIUM [Concomitant]
     Dosage: UNK
  4. VITAMIN D [Concomitant]
     Dosage: UNK
  5. LYSINE [Concomitant]
     Dosage: UNK
  6. FISH OIL [Concomitant]
     Dosage: UNK

REACTIONS (1)
  - Injury [Unknown]
